FAERS Safety Report 6826178-8 (Version None)
Quarter: 2010Q3

REPORT INFORMATION
  Report Type: 
  Country: None (occurrence: None)
  Receive Date: 20100708
  Receipt Date: 20100708
  Transmission Date: 20110219
  Serious: No
  Sender: FDA-Public Use
  Company Number: None

PATIENT
  Sex: Female
  Weight: 92.2 kg

DRUGS (5)
  1. BUSULFAN [Suspect]
     Dosage: 192 MG
  2. FLUDARABINE PHOSPHATE [Suspect]
  3. G-CSF (FILGRASTIM, AMGEN) [Suspect]
     Dosage: 1800 MCG
  4. METHOTREXATE [Suspect]
     Dosage: 24 MG
  5. TACROLIMUS [Suspect]
     Dosage: 100 MG

REACTIONS (6)
  - BACTERIAL TEST POSITIVE [None]
  - HYPOXIA [None]
  - PLEURAL EFFUSION [None]
  - PULMONARY OEDEMA [None]
  - PYREXIA [None]
  - STAPHYLOCOCCUS TEST POSITIVE [None]
